FAERS Safety Report 22397235 (Version 1)
Quarter: 2023Q2

REPORT INFORMATION
  Report Type: Spontaneous
  Country: ES (occurrence: ES)
  Receive Date: 20230602
  Receipt Date: 20230602
  Transmission Date: 20230722
  Serious: Yes (Other)
  Sender: FDA-Public Use
  Company Number: None

PATIENT
  Age: 67 Year
  Sex: Male

DRUGS (1)
  1. PIRFENIDONE [Suspect]
     Active Substance: PIRFENIDONE
     Indication: Idiopathic pulmonary fibrosis
     Dosage: 267 MG C/8 HOURS IN ASCENDING PATTERN, 267 MG FILM-COATED TABLETS EFG, 63 TABLETS
     Route: 065
     Dates: start: 20230315, end: 202303

REACTIONS (3)
  - Insomnia [Recovered/Resolved]
  - Paranoia [Recovered/Resolved]
  - Hallucination, visual [Recovered/Resolved]

NARRATIVE: CASE EVENT DATE: 20230322
